FAERS Safety Report 8145526-2 (Version None)
Quarter: 2012Q1

REPORT INFORMATION
  Report Type: 
  Country: None (occurrence: None)
  Receive Date: 20120217
  Receipt Date: 20110307
  Transmission Date: 20120608
  Serious: No
  Sender: FDA-Public Use
  Company Number: US-ABBOTT-11P-163-0709543-00

PATIENT
  Sex: Female
  Weight: 68.1 kg

DRUGS (12)
  1. CITRACAL [Concomitant]
     Indication: OSTEOPOROSIS PROPHYLAXIS
  2. M.V.I. [Concomitant]
     Indication: PRODUCT USED FOR UNKNOWN INDICATION
  3. SKELAXIN [Concomitant]
     Indication: MYALGIA
  4. PAIN PATCHES [Concomitant]
     Indication: PRODUCT USED FOR UNKNOWN INDICATION
  5. VITAMIN D [Concomitant]
     Indication: PRODUCT USED FOR UNKNOWN INDICATION
  6. LEVOXYL [Concomitant]
     Indication: PRODUCT USED FOR UNKNOWN INDICATION
  7. VICTOZA [Concomitant]
     Indication: DIABETES MELLITUS
  8. PANTOTHENIC  ACID OTC [Concomitant]
     Indication: PRODUCT USED FOR UNKNOWN INDICATION
  9. SIMCOR [Suspect]
     Indication: BLOOD CHOLESTEROL INCREASED
     Dosage: 500/40
  10. BYSTOLIC [Concomitant]
     Indication: BLOOD PRESSURE
  11. CRANBERRY [Concomitant]
     Indication: PRODUCT USED FOR UNKNOWN INDICATION
  12. HYDROCODONE [Concomitant]
     Indication: PRODUCT USED FOR UNKNOWN INDICATION

REACTIONS (5)
  - SKIN BURNING SENSATION [None]
  - DYSPNOEA [None]
  - PARAESTHESIA [None]
  - CHEST DISCOMFORT [None]
  - BLOOD GLUCOSE INCREASED [None]
